FAERS Safety Report 21711047 (Version 2)
Quarter: 2025Q2

REPORT INFORMATION
  Report Type: Report from Study
  Country: DE (occurrence: DE)
  Receive Date: 20221212
  Receipt Date: 20250618
  Transmission Date: 20250717
  Serious: Yes (Hospitalization, Other)
  Sender: AUROBINDO
  Company Number: DE-DEXPHARM-20222292

PATIENT
  Age: 66 Year
  Sex: Male

DRUGS (1)
  1. VENLAFAXINE [Suspect]
     Active Substance: VENLAFAXINE HYDROCHLORIDE
     Indication: Product used for unknown indication
     Route: 065

REACTIONS (2)
  - Serotonin syndrome [Recovered/Resolved with Sequelae]
  - Posterior reversible encephalopathy syndrome [Recovered/Resolved with Sequelae]
